FAERS Safety Report 25131286 (Version 1)
Quarter: 2025Q1

REPORT INFORMATION
  Report Type: Spontaneous
  Country: US (occurrence: US)
  Receive Date: 20250327
  Receipt Date: 20250327
  Transmission Date: 20250408
  Serious: Yes (Hospitalization, Other)
  Sender: GLAXOSMITHKLINE
  Company Number: US-GLAXOSMITHKLINE INC-US2025034112

PATIENT

DRUGS (1)
  1. TRELEGY ELLIPTA [Suspect]
     Active Substance: FLUTICASONE FUROATE\UMECLIDINIUM BROMIDE\VILANTEROL TRIFENATATE
     Indication: Chronic obstructive pulmonary disease
     Dates: start: 202201

REACTIONS (3)
  - Cardiac failure congestive [Unknown]
  - Fall [Not Recovered/Not Resolved]
  - Joint injury [Unknown]

NARRATIVE: CASE EVENT DATE: 20241212
